FAERS Safety Report 19070010 (Version 1)
Quarter: 2021Q1

REPORT INFORMATION
  Report Type: Report from Study
  Country: DE (occurrence: DE)
  Receive Date: 20210329
  Receipt Date: 20210329
  Transmission Date: 20210420
  Serious: Yes (Hospitalization, Other)
  Sender: FDA-Public Use
  Company Number: DE-INTERCEPT-PM2021000888

PATIENT
  Sex: Female

DRUGS (1)
  1. OBETICHOLIC ACID [Suspect]
     Active Substance: OBETICHOLIC ACID
     Indication: PRIMARY BILIARY CHOLANGITIS
     Dosage: 5 MILLIGRAM, QW
     Route: 048
     Dates: start: 201901, end: 20201029

REACTIONS (5)
  - Bulimia nervosa [Not Recovered/Not Resolved]
  - Hepatic function abnormal [Not Recovered/Not Resolved]
  - Oedema [Unknown]
  - Hepatic cirrhosis [Not Recovered/Not Resolved]
  - Transplant evaluation [Not Recovered/Not Resolved]

NARRATIVE: CASE EVENT DATE: 2020
